FAERS Safety Report 20063890 (Version 2)
Quarter: 2021Q4

REPORT INFORMATION
  Report Type: Spontaneous
  Country: JP (occurrence: JP)
  Receive Date: 20211112
  Receipt Date: 20211201
  Transmission Date: 20220303
  Serious: Yes (Other)
  Sender: FDA-Public Use
  Company Number: JP-ELI_LILLY_AND_COMPANY-JP202111002248

PATIENT
  Age: 38 Year
  Sex: Female

DRUGS (3)
  1. HUMALOG [Suspect]
     Active Substance: INSULIN LISPRO
     Indication: Diabetes mellitus
     Route: 058
  2. LEVEMIR [Suspect]
     Active Substance: INSULIN DETEMIR
     Indication: Diabetes mellitus
     Route: 058
  3. HYDROCORTISONE [Concomitant]
     Active Substance: HYDROCORTISONE
     Indication: Secondary adrenocortical insufficiency
     Route: 048

REACTIONS (5)
  - Abortion spontaneous [Unknown]
  - Anti-insulin antibody positive [Recovering/Resolving]
  - Maternal exposure during pregnancy [Recovered/Resolved]
  - Hyperglycaemia [Unknown]
  - Drug hypersensitivity [Unknown]
